FAERS Safety Report 9200684 (Version 2)
Quarter: 2013Q2

REPORT INFORMATION
  Report Type: Spontaneous
  Country: ES (occurrence: ES)
  Receive Date: 20130331
  Receipt Date: 20130523
  Transmission Date: 20140414
  Serious: Yes (Other)
  Sender: FDA-Public Use
  Company Number: ES-ELI_LILLY_AND_COMPANY-ES201303006567

PATIENT
  Age: 63 Year
  Sex: Female
  Weight: 70 kg

DRUGS (7)
  1. CYMBALTA [Suspect]
     Indication: NEURALGIA
     Dosage: UNK, UNKNOWN
     Route: 065
     Dates: start: 20120921
  2. ADIRO [Concomitant]
     Dosage: UNK, UNKNOWN
     Route: 065
  3. ATENOLOL [Concomitant]
     Dosage: 50 MG, UNKNOWN
     Route: 065
  4. DIOSMIN W/HESPERIDIN [Concomitant]
     Dosage: UNK, UNKNOWN
     Route: 065
  5. METAMIZOL [Concomitant]
     Dosage: UNK, UNKNOWN
     Route: 065
  6. DICLOFENAC [Concomitant]
     Dosage: UNK, UNKNOWN
     Route: 065
  7. DIAZEPAM [Concomitant]
     Dosage: 5 MG, UNKNOWN
     Route: 065

REACTIONS (5)
  - Blindness transient [Recovered/Resolved]
  - Vitreous floaters [Recovered/Resolved]
  - Dysarthria [Recovered/Resolved]
  - Off label use [Unknown]
  - Confusional state [Recovered/Resolved]
